FAERS Safety Report 17479231 (Version 1)
Quarter: 2020Q1

REPORT INFORMATION
  Report Type: Report from Study
  Country: FR (occurrence: FR)
  Receive Date: 20200228
  Receipt Date: 20200228
  Transmission Date: 20200409
  Serious: Yes (Hospitalization)
  Sender: FDA-Public Use
  Company Number: FR-JNJFOC-20191248366

PATIENT
  Age: 60 Year
  Sex: Female
  Weight: 45 kg

DRUGS (23)
  1. LOCAPRED [Concomitant]
     Active Substance: DESONIDE
  2. VITAMIN D3 [Concomitant]
     Active Substance: CHOLECALCIFEROL
  3. NICOPATCH [Concomitant]
     Active Substance: NICOTINE
     Dates: start: 20190826, end: 20190926
  4. AUGMENTIN [Concomitant]
     Active Substance: AMOXICILLIN\CLAVULANATE POTASSIUM
     Dates: start: 20190426, end: 20190503
  5. ROSUVASTATIN. [Concomitant]
     Active Substance: ROSUVASTATIN
  6. COVERAM [Concomitant]
     Active Substance: AMLODIPINE\PERINDOPRIL
  7. VASELINE                           /00473501/ [Concomitant]
     Active Substance: PARAFFIN
  8. SPIRONOLACTONE. [Concomitant]
     Active Substance: SPIRONOLACTONE
  9. LEVOFLOXACIN. [Concomitant]
     Active Substance: LEVOFLOXACIN
     Dates: start: 20190826, end: 20190928
  10. GENTAMICINE                        /00047101/ [Concomitant]
     Active Substance: GENTAMICIN
     Dates: start: 20190430, end: 20190503
  11. SERESTA [Concomitant]
     Active Substance: OXAZEPAM
     Indication: PRODUCT USED FOR UNKNOWN INDICATION
     Route: 065
     Dates: start: 20190409
  12. DIPROSONE                          /00008502/ [Concomitant]
     Active Substance: BETAMETHASONE SODIUM PHOSPHATE
  13. RIFADINE                           /00146901/ [Concomitant]
     Active Substance: RIFAMPIN
     Dates: start: 20190826, end: 20190928
  14. STELARA [Suspect]
     Active Substance: USTEKINUMAB
     Indication: PRODUCT USED FOR UNKNOWN INDICATION
     Route: 058
     Dates: start: 20190409
  15. THIAMINE. [Concomitant]
     Active Substance: THIAMINE
  16. AMOXICILLIN TRIHYDRATE [Concomitant]
     Active Substance: AMOXICILLIN
     Dates: start: 20190430, end: 20190503
  17. PYRIDOXINE [Concomitant]
     Active Substance: PYRIDOXINE
  18. ACIDE FOLIQUE [Concomitant]
     Active Substance: FOLIC ACID
  19. DOLIPRANE [Concomitant]
     Active Substance: ACETAMINOPHEN
     Dates: start: 20190826, end: 20190928
  20. ORBENINE [Concomitant]
     Active Substance: CLOXACILLIN SODIUM
     Dates: start: 20190430, end: 20190510
  21. CLOBEX                             /00012002/ [Concomitant]
     Active Substance: CLOXACILLIN SODIUM
  22. CLARELUX [Concomitant]
     Active Substance: CLOBETASOL PROPIONATE
  23. MOVICOL [Concomitant]
     Active Substance: POLYETHYLENE GLYCOL 3350\POTASSIUM CHLORIDE\SODIUM BICARBONATE\SODIUM CHLORIDE
     Dates: start: 20190826, end: 20191016

REACTIONS (3)
  - Intervertebral discitis [Recovered/Resolved]
  - Staphylococcal bacteraemia [Recovered/Resolved]
  - Thrombosis [Recovered/Resolved]

NARRATIVE: CASE EVENT DATE: 20190806
